FAERS Safety Report 9460100 (Version 1)
Quarter: 2013Q3

REPORT INFORMATION
  Report Type: Report from Study
  Country: DE (occurrence: DE)
  Receive Date: 20130815
  Receipt Date: 20130815
  Transmission Date: 20140515
  Serious: Yes (Other)
  Sender: FDA-Public Use
  Company Number: DE-ABBOTT-13P-062-1130727-00

PATIENT
  Age: 29 Year
  Sex: Female
  Weight: 54 kg

DRUGS (2)
  1. HUMIRA [Suspect]
     Indication: ANKYLOSING SPONDYLITIS
     Route: 058
     Dates: start: 20100414
  2. HUMIRA [Suspect]
     Route: 058
     Dates: end: 20130719

REACTIONS (3)
  - Rib fracture [Recovered/Resolved]
  - Otitis media [Recovered/Resolved]
  - Off label use [Unknown]
